FAERS Safety Report 5712431-8 (Version None)
Quarter: 2008Q2

REPORT INFORMATION
  Report Type: 
  Country: None (occurrence: None)
  Receive Date: 20080422
  Receipt Date: 20080410
  Transmission Date: 20081010
  Serious: Yes (Other)
  Sender: FDA-Public Use
  Company Number: US-TYCO HEALTHCARE/MALLINCKRODT-T200800669

PATIENT

DRUGS (5)
  1. SODIUM IODIDE I 131 [Suspect]
     Indication: BASEDOW'S DISEASE
     Dosage: 15 MCI, SINGLE
  2. METHIMAZOLE [Concomitant]
     Indication: ATRIAL FIBRILLATION
     Dosage: 20 MG, BID
  3. WARFARIN SODIUM [Concomitant]
     Indication: ATRIAL FIBRILLATION
     Dosage: UNK, UNK
  4. PROPRANOLOL [Concomitant]
     Indication: ATRIAL FIBRILLATION
     Dosage: 20 MG, TID
  5. DIGOXIN [Concomitant]
     Dosage: .25 MG, QD

REACTIONS (3)
  - DRUG TOXICITY [None]
  - GINGIVAL BLEEDING [None]
  - HYPERTHYROIDISM [None]
